FAERS Safety Report 5579704-3 (Version None)
Quarter: 2008Q1

REPORT INFORMATION
  Report Type: 
  Country: None (occurrence: None)
  Receive Date: 20080102
  Receipt Date: 20071221
  Transmission Date: 20080703
  Serious: Yes (Other)
  Sender: FDA-Public Use
  Company Number: ES-BOEHRINGER INGELHEIM PHARMACEUTICALS, INC.-2007-DE-03611GD

PATIENT

DRUGS (11)
  1. NIMESULIDE [Suspect]
  2. ACETYLSALICYLIC ACID SRT [Suspect]
     Dosage: MEDIAN 500 MG (500 - 2500 MG)
  3. RANITIDINE HCL [Suspect]
  4. HYDROCHLOROTHIAZIDE [Suspect]
  5. TRANXENE [Suspect]
  6. PARACETAMOL [Suspect]
     Dosage: MEDIAN 650 MG (MIN. 500 MG, MAX. 3250 MG)
  7. METAMIZOLE [Suspect]
  8. BUDESONIDE [Suspect]
  9. NAPROXEN [Suspect]
  10. IPRATROPIUM BROMIDE [Suspect]
  11. OTHER DRUGS AND HERBS [Suspect]

REACTIONS (3)
  - CHOLESTASIS [None]
  - HEPATOCELLULAR INJURY [None]
  - MIXED LIVER INJURY [None]
